FAERS Safety Report 21953654 (Version 1)
Quarter: 2023Q1

REPORT INFORMATION
  Report Type: Spontaneous
  Country: IT (occurrence: IT)
  Receive Date: 20230204
  Receipt Date: 20230204
  Transmission Date: 20230417
  Serious: Yes (Other)
  Sender: FDA-Public Use
  Company Number: IT-002147023-NVSC2023IT021973

PATIENT
  Age: 59 Year
  Sex: Male

DRUGS (6)
  1. LEVOFLOXACIN [Suspect]
     Active Substance: LEVOFLOXACIN
     Indication: Pneumonia legionella
     Dosage: 500 MG, QD, STARTED ON 25 SEP
     Route: 065
  2. MEROPENEM [Suspect]
     Active Substance: MEROPENEM
     Indication: Pneumonia legionella
     Dosage: 1 G, QD, STARTED ON 25 SEP
     Route: 065
  3. COTRIMOXAZOLE [Suspect]
     Active Substance: SULFAMETHOXAZOLE\TRIMETHOPRIM
     Indication: Pneumonia legionella
     Dosage: 3 FL, QD, STARTED ON 25 SEP
     Route: 065
  4. THYROGLOBULIN [Concomitant]
     Active Substance: THYROGLOBULIN
     Indication: Immunosuppressant drug therapy
     Dosage: 60 MG, QD
     Route: 065
  5. TACROLIMUS [Concomitant]
     Active Substance: TACROLIMUS
     Indication: Immunosuppressant drug therapy
     Dosage: UNK, STARTED ON 7 SEP
     Route: 065
  6. MYCOPHENOLATE MOFETIL [Concomitant]
     Active Substance: MYCOPHENOLATE MOFETIL
     Indication: Immunosuppressant drug therapy
     Dosage: UNK, STARTED ON 7 SEP
     Route: 065

REACTIONS (2)
  - Pneumonia legionella [Unknown]
  - Condition aggravated [Unknown]
